FAERS Safety Report 5309639-2 (Version None)
Quarter: 2007Q2

REPORT INFORMATION
  Report Type: 
  Country: None (occurrence: None)
  Receive Date: 20070427
  Receipt Date: 20060626
  Transmission Date: 20071010
  Serious: No
  Sender: FDA-Public Use
  Company Number: US-GLAXOSMITHKLINE-A0610346A

PATIENT
  Age: 66 Year
  Sex: Female

DRUGS (4)
  1. DEXEDRINE [Suspect]
     Dosage: 5MG PER DAY
     Route: 048
     Dates: start: 20060601
  2. DARVOCET [Concomitant]
  3. VITAMINS [Concomitant]
  4. PROZAC [Concomitant]

REACTIONS (4)
  - DRUG INEFFECTIVE [None]
  - FATIGUE [None]
  - MENTAL IMPAIRMENT [None]
  - SOMNOLENCE [None]
